FAERS Safety Report 9758643 (Version 1)
Quarter: 2013Q4

REPORT INFORMATION
  Report Type: Spontaneous
  Country: US (occurrence: None)
  Receive Date: 20131216
  Receipt Date: 20131216
  Transmission Date: 20140711
  Serious: Yes (Hospitalization)
  Sender: FDA-Public Use
  Company Number: RB-54286-2013

PATIENT
  Age: 26 Year
  Sex: Female

DRUGS (1)
  1. SUBOXONE (8 MG, 8 MG) [Suspect]
     Indication: DRUG DEPENDENCE
     Dosage: (16 MG, SUBOXONE FILM SUBLINGUAL), (SUBOXONE FILM SUBLINGUAL)

REACTIONS (6)
  - Drug withdrawal syndrome [None]
  - Abdominal pain [None]
  - Substance abuse [None]
  - Wrong technique in drug usage process [None]
  - Intentional drug misuse [None]
  - Exposure during pregnancy [None]
